FAERS Safety Report 23599285 (Version 1)
Quarter: 2024Q1

REPORT INFORMATION
  Report Type: Spontaneous
  Country: US (occurrence: US)
  Receive Date: 20240306
  Receipt Date: 20240306
  Transmission Date: 20240410
  Serious: No
  Sender: FDA-Public Use
  Company Number: US-PTC THERAPEUTICS INC.-US-2023PTC000275

PATIENT
  Sex: Male
  Weight: 56.39 kg

DRUGS (2)
  1. EMFLAZA [Suspect]
     Active Substance: DEFLAZACORT
     Indication: Duchenne muscular dystrophy
     Dosage: 36 MG, QD (TWO 18 MG TABLETS)
     Route: 048
     Dates: start: 20220909
  2. EMFLAZA [Suspect]
     Active Substance: DEFLAZACORT
     Indication: Becker^s muscular dystrophy
     Dosage: 18 MG, QD
     Route: 048

REACTIONS (2)
  - Product use complaint [Unknown]
  - Product dose confusion [Unknown]
